FAERS Safety Report 10276862 (Version 2)
Quarter: 2014Q3

REPORT INFORMATION
  Report Type: Spontaneous
  Country: JP (occurrence: JP)
  Receive Date: 20140703
  Receipt Date: 20140710
  Transmission Date: 20150326
  Serious: Yes (Other)
  Sender: FDA-Public Use
  Company Number: ALCN2014JP003887

PATIENT
  Age: 88 Year
  Sex: Male

DRUGS (3)
  1. MOXIFLOXACIN [Suspect]
     Active Substance: MOXIFLOXACIN
     Indication: ENDOPHTHALMITIS
  2. MOXIFLOXACIN [Suspect]
     Active Substance: MOXIFLOXACIN
     Indication: VISUAL IMPAIRMENT
  3. MOXIFLOXACIN [Suspect]
     Active Substance: MOXIFLOXACIN
     Indication: UVEITIS
     Dosage: 1 DF, PRN
     Route: 047

REACTIONS (5)
  - Visual acuity reduced [Recovered/Resolved]
  - Endophthalmitis [Recovered/Resolved]
  - Off label use [Recovered/Resolved]
  - Fungal infection [None]
  - Hypopyon [Recovered/Resolved]
